FAERS Safety Report 5114810-9 (Version None)
Quarter: 2006Q3

REPORT INFORMATION
  Report Type: 
  Country: None (occurrence: None)
  Receive Date: 20060922
  Receipt Date: 20060922
  Transmission Date: 20061208
  Serious: Yes (Other)
  Sender: FDA-Public Use
  Company Number: None

PATIENT
  Sex: Female
  Weight: 86.1834 kg

DRUGS (1)
  1. FACTIVE [Suspect]
     Indication: PNEUMONIA
     Dosage: 320 MG TABLETS   ONCE DAILY FOR 7 D   PO
     Route: 048
     Dates: start: 20060912, end: 20060918

REACTIONS (2)
  - DERMATITIS ALLERGIC [None]
  - URTICARIA [None]
